FAERS Safety Report 7703615-8 (Version None)
Quarter: 2011Q3

REPORT INFORMATION
  Report Type: 
  Country: None (occurrence: None)
  Receive Date: 20110823
  Receipt Date: 20110817
  Transmission Date: 20111222
  Serious: Yes (Hospitalization)
  Sender: FDA-Public Use
  Company Number: PHHO2011US14006

PATIENT
  Sex: Male
  Weight: 89.342 kg

DRUGS (6)
  1. BLINDED NO TREATMENT RECEIVED [Suspect]
     Indication: GOUTY ARTHRITIS
     Dosage: NO TREATMENT
  2. PLACEBO [Suspect]
     Indication: GOUTY ARTHRITIS
     Dosage: NO TREATMENT
  3. TRIAMCINOLONE ACETONIDE [Suspect]
     Indication: GOUTY ARTHRITIS
     Dosage: NO TREATMENT
  4. METOPROLOL TARTRATE AND HYDROCHLOROTHIAZIDE [Concomitant]
     Indication: HYPERTENSION
     Dosage: 1 TAB, BID
     Route: 048
     Dates: start: 20090101
  5. ILARIS [Suspect]
     Indication: GOUTY ARTHRITIS
     Dosage: NO TREATMENT
  6. ILARIS [Suspect]
     Dosage: NO TREATMENT

REACTIONS (1)
  - HAEMORRHAGE [None]
